FAERS Safety Report 8559570-4 (Version None)
Quarter: 2012Q3

REPORT INFORMATION
  Report Type: 
  Country: None (occurrence: None)
  Receive Date: 20120802
  Receipt Date: 20120530
  Transmission Date: 20120928
  Serious: Yes (Hospitalization)
  Sender: FDA-Public Use
  Company Number: JP-009507513-1207JPN007420

PATIENT

DRUGS (14)
  1. REBETOL [Suspect]
     Dosage: 600 MG, ONCE
     Route: 048
     Dates: start: 20120418, end: 20120509
  2. MARZULENE-S [Concomitant]
     Indication: PROPHYLAXIS
     Route: 048
     Dates: start: 20120327, end: 20120509
  3. NEXIUM [Concomitant]
     Indication: GASTROOESOPHAGEAL REFLUX DISEASE
     Route: 048
     Dates: start: 20120327
  4. TELAVIC [Suspect]
     Route: 048
     Dates: start: 20120418, end: 20120509
  5. DIOVAN [Concomitant]
     Indication: HYPERTENSION
     Route: 048
     Dates: start: 20120327
  6. TELAVIC [Suspect]
     Indication: HEPATITIS C
     Route: 048
     Dates: start: 20120322, end: 20120417
  7. PEG-INTRON [Suspect]
     Indication: HEPATITIS C
     Dosage: 100MCG/KG/WEEK
     Route: 058
     Dates: start: 20120322
  8. PEG-INTRON [Suspect]
     Dosage: 1.5MCG/KG/WEEK
     Route: 058
  9. REBETOL [Suspect]
     Dosage: 400 MG, ONCE
     Route: 048
     Dates: start: 20120511
  10. TELAVIC [Suspect]
     Route: 048
     Dates: start: 20120511, end: 20120522
  11. AZUNOL (SODIUM GUALENATE) [Concomitant]
     Route: 065
     Dates: start: 20120425
  12. REBETOL [Suspect]
     Indication: HEPATITIS C
     Route: 048
     Dates: start: 20120322, end: 20120417
  13. ADALAT CC [Concomitant]
     Route: 048
     Dates: start: 20120327, end: 20120418
  14. MUCOSTA [Concomitant]
     Indication: PROPHYLAXIS
     Route: 048
     Dates: start: 20120327, end: 20120509

REACTIONS (6)
  - MALAISE [None]
  - DECREASED APPETITE [None]
  - HAEMOLYTIC ANAEMIA [None]
  - HAEMOGLOBIN DECREASED [None]
  - WHITE BLOOD CELL COUNT DECREASED [None]
  - DYSGEUSIA [None]
